FAERS Safety Report 18002060 (Version 1)
Quarter: 2020Q3

REPORT INFORMATION
  Report Type: Report from Study
  Country: None (occurrence: US)
  Receive Date: 20200710
  Receipt Date: 20200710
  Transmission Date: 20201103
  Serious: Yes (Other)
  Sender: FDA-Public Use
  Company Number: US-ABBVIE-20K-163-3350940-00

PATIENT
  Age: 32 Year
  Sex: Female
  Weight: 82.63 kg

DRUGS (4)
  1. SERTRALINE [Concomitant]
     Active Substance: SERTRALINE HYDROCHLORIDE
     Indication: ANXIETY
  2. HUMIRA [Suspect]
     Active Substance: ADALIMUMAB
     Indication: CROHN^S DISEASE
     Route: 058
     Dates: start: 201804
  3. VITAMIN B12 [Concomitant]
     Active Substance: CYANOCOBALAMIN
     Indication: GASTROINTESTINAL INJURY
     Route: 050
  4. HUMIRA [Suspect]
     Active Substance: ADALIMUMAB
     Route: 058

REACTIONS (7)
  - Maternal exposure during pregnancy [Not Recovered/Not Resolved]
  - Crohn^s disease [Recovered/Resolved]
  - Diarrhoea [Recovering/Resolving]
  - Umbilical cord prolapse [Unknown]
  - Nausea [Recovered/Resolved]
  - Abdominal pain [Recovering/Resolving]
  - Live birth [Unknown]

NARRATIVE: CASE EVENT DATE: 202001
